FAERS Safety Report 5427043-3 (Version None)
Quarter: 2007Q3

REPORT INFORMATION
  Report Type: 
  Country: None (occurrence: None)
  Receive Date: 20070824
  Receipt Date: 20070824
  Transmission Date: 20080115
  Serious: Yes (Life-Threatening, Hospitalization)
  Sender: FDA-Public Use
  Company Number: None

PATIENT
  Age: 29 Year
  Sex: Female
  Weight: 41.7309 kg

DRUGS (1)
  1. SUSTIVA [Suspect]
     Indication: HIV INFECTION
     Dosage: ORAL;600.0 MILLIGRAM
     Route: 048
     Dates: start: 20070313, end: 20070607

REACTIONS (4)
  - ANGER [None]
  - DEPRESSION [None]
  - MOOD ALTERED [None]
  - SUICIDE ATTEMPT [None]
